FAERS Safety Report 8869831 (Version 1)
Quarter: 2012Q4

REPORT INFORMATION
  Report Type: 
  Country: US (occurrence: US)
  Receive Date: 20121023
  Receipt Date: 20121023
  Transmission Date: 20130627
  Serious: No
  Sender: FDA-Public Use
  Company Number: US-AMGEN-USASP2012044693

PATIENT
  Age: 56 Year
  Sex: Female

DRUGS (6)
  1. ENBREL [Suspect]
     Indication: PRODUCT USED FOR UNKNOWN INDICATION
     Dosage: 25 mg, 2 times/wk
     Route: 058
  2. CLOBETASOL [Concomitant]
     Dosage: E CRE 0.05%
  3. ALLEGRA [Concomitant]
     Dosage: 30 mg, UNK
  4. LOTREL [Concomitant]
     Dosage: 5-10 mg, UNK
  5. DOVONEX [Concomitant]
     Dosage: 0.005%
  6. CALCITRIOL [Concomitant]
     Dosage: 0.25 MCG

REACTIONS (1)
  - Breast disorder [Unknown]
